FAERS Safety Report 19803755 (Version 3)
Quarter: 2022Q2

REPORT INFORMATION
  Report Type: Spontaneous
  Country: US (occurrence: US)
  Receive Date: 20210908
  Receipt Date: 20220413
  Transmission Date: 20220720
  Serious: No
  Sender: FDA-Public Use
  Company Number: US-PFIZER INC-202101025108

PATIENT
  Age: 14 Year
  Sex: Male
  Weight: 95.25 kg

DRUGS (1)
  1. GENOTROPIN [Suspect]
     Active Substance: SOMATROPIN
     Dosage: 1.8 MG
     Dates: start: 2018

REACTIONS (4)
  - Device failure [Unknown]
  - Device use error [Unknown]
  - Poor quality device used [Unknown]
  - Device use issue [Unknown]
